FAERS Safety Report 17171891 (Version 1)
Quarter: 2019Q4

REPORT INFORMATION
  Report Type: Spontaneous
  Country: US (occurrence: US)
  Receive Date: 20191218
  Receipt Date: 20191218
  Transmission Date: 20200122
  Serious: No
  Sender: FDA-Public Use
  Company Number: US-SA-2019SA347820

PATIENT
  Sex: Male

DRUGS (1)
  1. JEVTANA [Suspect]
     Active Substance: CABAZITAXEL
     Indication: NEOPLASM MALIGNANT
     Dosage: 42 MG
     Dates: start: 20191211

REACTIONS (3)
  - Dizziness [Recovering/Resolving]
  - Blood glucose decreased [Recovering/Resolving]
  - Inadequate aseptic technique in use of product [Unknown]

NARRATIVE: CASE EVENT DATE: 20191211
